FAERS Safety Report 5355787-0 (Version None)
Quarter: 2007Q2

REPORT INFORMATION
  Report Type: 
  Country: None (occurrence: None)
  Receive Date: 20070530
  Receipt Date: 20061009
  Transmission Date: 20071010
  Serious: Yes (Other)
  Sender: FDA-Public Use
  Company Number: US200610001611

PATIENT
  Sex: Male

DRUGS (8)
  1. ZYPREXA [Suspect]
     Dates: start: 19980101, end: 20040101
  2. ABILIFY [Concomitant]
  3. RISPERDAL /SWE/ (RISPERIDONE) [Concomitant]
  4. LITHIUM CARBONATE [Concomitant]
  5. ANAFRANIL /GFR/ (CLOMIPRAMINE HYDROCHLORIDE) [Concomitant]
  6. TOFRANIL-PM (IMIPRAMINE EMBONATE) [Concomitant]
  7. ZOLOFT [Concomitant]
  8. EFFEXOR [Concomitant]

REACTIONS (3)
  - DEPRESSION [None]
  - DIABETES MELLITUS [None]
  - DIABETIC KETOACIDOSIS [None]
